FAERS Safety Report 11735320 (Version 2)
Quarter: 2015Q4

REPORT INFORMATION
  Report Type: Spontaneous
  Country: JP (occurrence: JP)
  Receive Date: 20151113
  Receipt Date: 20151224
  Transmission Date: 20160304
  Serious: Yes (Other)
  Sender: FDA-Public Use
  Company Number: PHJP2015JP019753

PATIENT
  Age: 74 Year
  Sex: Male

DRUGS (4)
  1. PARKISTON [Concomitant]
     Indication: PARKINSON^S DISEASE
     Dosage: 4.5 MG, QD
     Route: 048
  2. PARKISTON [Concomitant]
     Dosage: 3 DF, QD
     Route: 048
  3. MIRAPEX [Concomitant]
     Active Substance: PRAMIPEXOLE DIHYDROCHLORIDE
     Indication: PARKINSON^S DISEASE
     Dosage: 1.5 MG, QD
     Route: 048
  4. STALEVO [Suspect]
     Active Substance: CARBIDOPA\ENTACAPONE\LEVODOPA
     Indication: PARKINSON^S DISEASE
     Dosage: (LEVODOPA 100 MG/ CARBIDOPA 10 MG/ ENTACAPONE 100 MG) 0.5 DF TID
     Route: 048

REACTIONS (1)
  - Akinesia [Recovered/Resolved]
